FAERS Safety Report 13031622 (Version 1)
Quarter: 2016Q4

REPORT INFORMATION
  Report Type: Spontaneous
  Country: US (occurrence: US)
  Receive Date: 20161215
  Receipt Date: 20161215
  Transmission Date: 20170207
  Serious: Yes (Other)
  Sender: FDA-Public Use
  Company Number: US-PFIZER INC-2016576763

PATIENT
  Age: 61 Year
  Sex: Female
  Weight: 117 kg

DRUGS (3)
  1. EFFEXOR XR [Suspect]
     Active Substance: VENLAFAXINE HYDROCHLORIDE
     Indication: DEPRESSION
     Dosage: 75 MG, 1X/DAY
  2. LYRICA [Suspect]
     Active Substance: PREGABALIN
     Indication: FIBROMYALGIA
     Dosage: UNK
  3. EFFEXOR XR [Suspect]
     Active Substance: VENLAFAXINE HYDROCHLORIDE
     Indication: ANXIETY
     Dosage: 75 MG, 2X/DAY

REACTIONS (8)
  - Malaise [Unknown]
  - Fungal infection [Not Recovered/Not Resolved]
  - Escherichia infection [Unknown]
  - Muscle spasms [Unknown]
  - Pain [Unknown]
  - Condition aggravated [Not Recovered/Not Resolved]
  - Dysuria [Unknown]
  - Gait disturbance [Unknown]

NARRATIVE: CASE EVENT DATE: 201611
